FAERS Safety Report 13710097 (Version 1)
Quarter: 2017Q3

REPORT INFORMATION
  Report Type: Spontaneous
  Country: US (occurrence: US)
  Receive Date: 20170703
  Receipt Date: 20170703
  Transmission Date: 20171127
  Serious: Yes (Other)
  Sender: FDA-Public Use
  Company Number: US-TEVA-733582USA

PATIENT
  Age: 77 Year
  Sex: Male
  Weight: 94 kg

DRUGS (2)
  1. GABAPENTIN. [Concomitant]
     Active Substance: GABAPENTIN
  2. LIDOCAINE. [Suspect]
     Active Substance: LIDOCAINE
     Indication: NEUROPATHY PERIPHERAL
     Route: 062
     Dates: start: 20170118

REACTIONS (2)
  - Orthostatic hypotension [Unknown]
  - Adverse event [Unknown]

NARRATIVE: CASE EVENT DATE: 20170118
